FAERS Safety Report 6206907-7 (Version None)
Quarter: 2009Q2

REPORT INFORMATION
  Report Type: 
  Country: None (occurrence: None)
  Receive Date: 20090528
  Receipt Date: 20090515
  Transmission Date: 20091009
  Serious: Yes (Hospitalization)
  Sender: FDA-Public Use
  Company Number: A0774404A

PATIENT
  Age: 37 Year
  Sex: Female
  Weight: 81.8 kg

DRUGS (7)
  1. AVANDIA [Suspect]
     Dosage: 4MG TWICE PER DAY
     Route: 048
     Dates: start: 20060502, end: 20070726
  2. METFORMIN HCL [Concomitant]
  3. DARVOCET [Concomitant]
  4. LEVAQUIN [Concomitant]
  5. PROTONIX [Concomitant]
  6. MUCOMYST [Concomitant]
  7. ZOCOR [Concomitant]

REACTIONS (3)
  - ARTERIOVENOUS GRAFT SITE INFECTION [None]
  - CORONARY ARTERY DISEASE [None]
  - MYOCARDIAL INFARCTION [None]
